FAERS Safety Report 7066961-X (Version None)
Quarter: 2010Q4

REPORT INFORMATION
  Report Type: 
  Country: None (occurrence: None)
  Receive Date: 20101028
  Receipt Date: 20101018
  Transmission Date: 20110411
  Serious: No
  Sender: FDA-Public Use
  Company Number: US-BIOGENIDEC-2010BI034814

PATIENT
  Sex: Female

DRUGS (1)
  1. TYSABRI [Suspect]
     Indication: MULTIPLE SCLEROSIS
     Route: 042
     Dates: start: 20071227

REACTIONS (8)
  - ANGER [None]
  - APHONIA [None]
  - COGNITIVE DISORDER [None]
  - DIABETES MELLITUS [None]
  - DYSGRAPHIA [None]
  - FATIGUE [None]
  - PERIARTHRITIS [None]
  - RENAL FAILURE CHRONIC [None]
